FAERS Safety Report 7255324-X (Version None)
Quarter: 2011Q1

REPORT INFORMATION
  Report Type: 
  Country: None (occurrence: None)
  Receive Date: 20110129
  Receipt Date: 20100331
  Transmission Date: 20110831
  Serious: No
  Sender: FDA-Public Use
  Company Number: US-ABBOTT-10P-163-0629381-00

PATIENT
  Sex: Female
  Weight: 79.45 kg

DRUGS (27)
  1. HUMIRA [Suspect]
     Route: 058
  2. HYROCOD HOM [Concomitant]
     Indication: COUGH
     Dosage: Q 4 HRS PRN
  3. HUMIRA [Suspect]
     Indication: PSORIATIC ARTHROPATHY
     Route: 058
     Dates: start: 20091231, end: 20100329
  4. TOPAMAX [Concomitant]
     Indication: MIGRAINE
     Dosage: 2 IN THE AM 4 AT NIGHT
  5. FLONASE [Concomitant]
     Indication: SINUS DISORDER
  6. LIDODERM [Concomitant]
     Indication: PAIN
     Route: 062
  7. RESTASIS [Concomitant]
     Indication: PRODUCT USED FOR UNKNOWN INDICATION
     Route: 031
  8. VITAMIN B-12 [Concomitant]
     Indication: PRODUCT USED FOR UNKNOWN INDICATION
  9. M.V.I. [Concomitant]
     Indication: PRODUCT USED FOR UNKNOWN INDICATION
  10. HUMIRA [Suspect]
     Indication: PSORIASIS
     Route: 058
  11. DICYCOMINE [Concomitant]
     Indication: IRRITABLE BOWEL SYNDROME
  12. ALBUTEROL [Concomitant]
     Indication: PRODUCT USED FOR UNKNOWN INDICATION
     Dosage: 4 TIMES PER DAY PRN
     Dates: start: 20100101
  13. VITAMIN B6 [Concomitant]
     Indication: PRODUCT USED FOR UNKNOWN INDICATION
  14. CEFDENIR [Concomitant]
     Indication: PRODUCT USED FOR UNKNOWN INDICATION
  15. AVELOX [Concomitant]
     Indication: PRODUCT USED FOR UNKNOWN INDICATION
  16. ATENOLOL [Concomitant]
     Indication: PRODUCT USED FOR UNKNOWN INDICATION
  17. IMITREX [Concomitant]
     Indication: HEADACHE
     Route: 045
  18. IMITREX [Concomitant]
  19. VENTOLIN [Concomitant]
     Indication: ASTHMA
  20. DIAZEPAM [Concomitant]
     Indication: PRODUCT USED FOR UNKNOWN INDICATION
  21. METHADONE [Concomitant]
     Indication: PAIN
  22. BACTORBAN [Concomitant]
     Indication: SKIN INFECTION
  23. POLYGLYCO POWDER [Concomitant]
     Indication: CONSTIPATION
  24. ASCORBIC ACID [Concomitant]
     Indication: PRODUCT USED FOR UNKNOWN INDICATION
  25. CAL C + D [Concomitant]
     Indication: PRODUCT USED FOR UNKNOWN INDICATION
  26. STOOL SOFTENER [Concomitant]
     Indication: PRODUCT USED FOR UNKNOWN INDICATION
  27. FLOVENT HFA [Concomitant]
     Indication: ASTHMA

REACTIONS (17)
  - CHEST DISCOMFORT [None]
  - SKIN HAEMORRHAGE [None]
  - FATIGUE [None]
  - HEADACHE [None]
  - DECREASED APPETITE [None]
  - SKIN FISSURES [None]
  - DRY MOUTH [None]
  - OROPHARYNGEAL PAIN [None]
  - INCREASED UPPER AIRWAY SECRETION [None]
  - BRONCHITIS [None]
  - AGEUSIA [None]
  - RESPIRATORY TRACT CONGESTION [None]
  - THERAPY REGIMEN CHANGED [None]
  - DRUG EFFECT DECREASED [None]
  - ASTHMA [None]
  - COUGH [None]
  - WEIGHT DECREASED [None]
